FAERS Safety Report 6541772-X (Version None)
Quarter: 2010Q1

REPORT INFORMATION
  Report Type: 
  Country: None (occurrence: None)
  Receive Date: 20100119
  Receipt Date: 20100114
  Transmission Date: 20100710
  Serious: Yes (Death)
  Sender: FDA-Public Use
  Company Number: JP-ASTRAZENECA-2009SE33572

PATIENT
  Age: 81 Year
  Sex: Female

DRUGS (4)
  1. OMEPRAL [Suspect]
     Indication: ANASTOMOTIC ULCER
     Route: 048
     Dates: start: 20091221, end: 20091226
  2. MUCOSTA [Concomitant]
     Dosage: DOSE UNKNOWN
     Route: 048
  3. MAGMITT [Concomitant]
     Dosage: DOSE UNKNOWN
     Route: 048
  4. LAC-B [Concomitant]
     Dosage: DOSE UNKNOWN
     Route: 048

REACTIONS (2)
  - DIARRHOEA [None]
  - VOMITING [None]
